FAERS Safety Report 10229407 (Version 1)
Quarter: 2014Q2

REPORT INFORMATION
  Report Type: Spontaneous
  Country: US (occurrence: None)
  Receive Date: 20140521
  Receipt Date: 20140521
  Transmission Date: 20141212
  Serious: Yes (Hospitalization)
  Sender: FDA-Public Use
  Company Number: EUS-2013-00746

PATIENT
  Sex: Female

DRUGS (1)
  1. QUADRAMET [Suspect]

REACTIONS (2)
  - Pain [None]
  - Platelet count decreased [None]
